FAERS Safety Report 7215611-8 (Version None)
Quarter: 2011Q1

REPORT INFORMATION
  Report Type: 
  Country: None (occurrence: None)
  Receive Date: 20110107
  Receipt Date: 20101221
  Transmission Date: 20110831
  Serious: Yes (Other)
  Sender: FDA-Public Use
  Company Number: DE-CELGENEUS-062-21880-10122835

PATIENT

DRUGS (5)
  1. REVLIMID [Suspect]
     Indication: MULTIPLE MYELOMA
     Route: 048
  2. PREDNISONE [Concomitant]
     Indication: MULTIPLE MYELOMA
     Route: 065
  3. MELPHALAN [Concomitant]
     Indication: MULTIPLE MYELOMA
     Route: 065
  4. DEXAMETHASONE [Concomitant]
     Indication: MULTIPLE MYELOMA
     Route: 065
  5. DOXORUBICIN HCL [Concomitant]
     Indication: MULTIPLE MYELOMA
     Route: 065

REACTIONS (5)
  - TREMOR [None]
  - ARRHYTHMIA [None]
  - DISORIENTATION [None]
  - RASH [None]
  - NEUTROPENIA [None]
